FAERS Safety Report 13695479 (Version 2)
Quarter: 2017Q3

REPORT INFORMATION
  Report Type: Report from Study
  Country: US (occurrence: US)
  Receive Date: 20170627
  Receipt Date: 20170703
  Transmission Date: 20171127
  Serious: Yes (Hospitalization, Other)
  Sender: FDA-Public Use
  Company Number: US-GILEAD-2017-0276474

PATIENT
  Age: 56 Year
  Sex: Female

DRUGS (1)
  1. AMBRISENTAN [Suspect]
     Active Substance: AMBRISENTAN
     Indication: PULMONARY ARTERIAL HYPERTENSION
     Dosage: 5 MG, QD
     Route: 065
     Dates: start: 20160920

REACTIONS (7)
  - Hypothyroidism [Unknown]
  - Cardiac failure [Unknown]
  - Pericardial effusion [Unknown]
  - Neuralgia [Unknown]
  - Pulmonary arterial hypertension [Unknown]
  - Peripheral swelling [Unknown]
  - Abdominal distension [Unknown]
